FAERS Safety Report 10026017 (Version 1)
Quarter: 2014Q1

REPORT INFORMATION
  Report Type: Spontaneous
  Country: DE (occurrence: None)
  Receive Date: 20140318
  Receipt Date: 20140318
  Transmission Date: 20141002
  Serious: Yes (Other)
  Sender: FDA-Public Use
  Company Number: 1403-0503

PATIENT
  Age: 82 Year
  Sex: Male

DRUGS (1)
  1. EYLEA (AFLIBERCEPT) (SOLUTION FOR INJECTION) (AFLIBERCEPT) [Suspect]
     Indication: AGE-RELATED MACULAR DEGENERATION
     Dosage: 1 IN 1M
     Dates: start: 20121221

REACTIONS (2)
  - Pulmonary thrombosis [None]
  - Inappropriate schedule of drug administration [None]
